FAERS Safety Report 8967825 (Version 3)
Quarter: 2013Q1

REPORT INFORMATION
  Report Type: Spontaneous
  Country: US (occurrence: US)
  Receive Date: 20121217
  Receipt Date: 20130204
  Transmission Date: 20140127
  Serious: No
  Sender: FDA-Public Use
  Company Number: US-009507513-1212USA004678

PATIENT
  Age: 61 Year
  Sex: Female
  Weight: 64.4 kg

DRUGS (12)
  1. CLARITIN [Suspect]
     Indication: RHINORRHOEA
     Dosage: 10 MG, QD
     Route: 048
     Dates: start: 20121207, end: 20121208
  2. CLARITIN [Suspect]
     Indication: PAIN
     Dosage: 10 MG, ONCE
     Route: 048
     Dates: start: 20121209
  3. CLARITIN [Suspect]
     Indication: OROPHARYNGEAL PAIN
  4. CLARITIN [Suspect]
     Indication: MEDICAL OBSERVATION
  5. CLARITIN [Suspect]
     Indication: SNEEZING
  6. EFFEXOR [Concomitant]
     Indication: DEPRESSION
     Dosage: UNK, UNKNOWN
  7. IBUPROFEN [Concomitant]
     Indication: ARTHRITIS
     Dosage: UNK, UNKNOWN
  8. IBUPROFEN [Concomitant]
     Indication: BACK PAIN
  9. OMEGA-3 MARINE TRIGLYCERIDES [Concomitant]
     Indication: BLOOD CHOLESTEROL
     Dosage: UNK, UNKNOWN
  10. UBIDECARENONE [Concomitant]
     Indication: BLOOD CHOLESTEROL
     Dosage: UNK, UNKNOWN
  11. GARLIC [Concomitant]
     Indication: BLOOD CHOLESTEROL
     Dosage: UNK, UNKNOWN
  12. RED YEAST [Concomitant]
     Indication: BLOOD CHOLESTEROL
     Dosage: UNK, UNKNOWN

REACTIONS (7)
  - Chills [Unknown]
  - Somnolence [Unknown]
  - Retching [Unknown]
  - Cough [Unknown]
  - Lacrimation increased [Not Recovered/Not Resolved]
  - Eye irritation [Not Recovered/Not Resolved]
  - Drug ineffective [Unknown]
